FAERS Safety Report 6335611-X (Version None)
Quarter: 2009Q3

REPORT INFORMATION
  Report Type: 
  Country: None (occurrence: None)
  Receive Date: 20090831
  Receipt Date: 20090817
  Transmission Date: 20100115
  Serious: Yes (Hospitalization)
  Sender: FDA-Public Use
  Company Number: FR-GENENTECH-288908

PATIENT
  Sex: Female
  Weight: 25 kg

DRUGS (5)
  1. BEVACIZUMAB [Suspect]
     Indication: SARCOMA
     Dosage: 200 MG, Q21D
     Route: 042
     Dates: start: 20090605
  2. ACTINOMYCIN D [Suspect]
     Indication: SARCOMA
     Dosage: 1500 A?G, Q21D
     Route: 042
     Dates: start: 20090605
  3. DOXORUBICIN HCL [Suspect]
     Indication: SARCOMA
     Dosage: 30.4 MG, UNK
     Route: 042
     Dates: start: 20090605
  4. ISOPHOSPHAMIDE [Suspect]
     Indication: SARCOMA
     Dosage: 3 G, UNK
     Route: 042
     Dates: start: 20090605
  5. VINCRISTINE [Suspect]
     Indication: SARCOMA
     Dosage: 1.50 MG, UNK
     Route: 042
     Dates: start: 20090605

REACTIONS (4)
  - ABDOMINAL PAIN [None]
  - CARDIAC DISORDER [None]
  - FEBRILE BONE MARROW APLASIA [None]
  - MUCOSAL INFLAMMATION [None]
